FAERS Safety Report 6880315-8 (Version None)
Quarter: 2010Q3

REPORT INFORMATION
  Report Type: 
  Country: None (occurrence: None)
  Receive Date: 20100728
  Receipt Date: 20100716
  Transmission Date: 20110219
  Serious: Yes (Other)
  Sender: FDA-Public Use
  Company Number: US-CELGENEUS-163-21880-08031691

PATIENT
  Sex: Female

DRUGS (3)
  1. REVLIMID [Suspect]
     Indication: MULTIPLE MYELOMA
     Route: 048
     Dates: start: 20071025
  2. REVLIMID [Suspect]
     Route: 048
     Dates: start: 20070607, end: 20071001
  3. REVLIMID [Suspect]
     Route: 048
     Dates: start: 20080313

REACTIONS (9)
  - ANAEMIA [None]
  - ASTHMA [None]
  - CONSTIPATION [None]
  - DIZZINESS [None]
  - INSOMNIA [None]
  - NAUSEA [None]
  - NEUTROPENIA [None]
  - RASH [None]
  - VOMITING [None]
